FAERS Safety Report 20491211 (Version 3)
Quarter: 2022Q1

REPORT INFORMATION
  Report Type: Spontaneous
  Country: US (occurrence: US)
  Receive Date: 20220218
  Receipt Date: 20220317
  Transmission Date: 20220424
  Serious: Yes (Other)
  Sender: FDA-Public Use
  Company Number: US-SA-SAC20220215000314

PATIENT
  Sex: Female

DRUGS (1)
  1. KEVZARA [Suspect]
     Active Substance: SARILUMAB
     Indication: Rheumatoid arthritis
     Dosage: 200 MG, QOW, ROTATING INJECTION SITES
     Route: 058

REACTIONS (3)
  - Rheumatoid arthritis [Recovering/Resolving]
  - Pain [Recovering/Resolving]
  - Loss of personal independence in daily activities [Recovering/Resolving]
